FAERS Safety Report 8592183-7 (Version None)
Quarter: 2012Q3

REPORT INFORMATION
  Report Type: 
  Country: None (occurrence: None)
  Receive Date: 20120814
  Receipt Date: 20120807
  Transmission Date: 20120928
  Serious: Yes (Other)
  Sender: FDA-Public Use
  Company Number: US-ELI_LILLY_AND_COMPANY-US201208002795

PATIENT
  Age: 51 Year
  Sex: Female

DRUGS (3)
  1. ANTIHYPERTENSIVES [Concomitant]
     Indication: HYPERTENSION
  2. ADDERALL 5 [Concomitant]
     Indication: MULTIPLE SCLEROSIS
  3. CYMBALTA [Suspect]
     Indication: DEPRESSION
     Dosage: 60 MG, BID

REACTIONS (9)
  - DRUG INEFFECTIVE [None]
  - PRODUCT COUNTERFEIT [None]
  - DRUG WITHDRAWAL SYNDROME [None]
  - DRUG DOSE OMISSION [None]
  - SPEECH DISORDER [None]
  - MYALGIA [None]
  - PRODUCT CONTAMINATION [None]
  - NEOPLASM MALIGNANT [None]
  - PARAESTHESIA [None]
